FAERS Safety Report 5202245-X (Version None)
Quarter: 2006Q4

REPORT INFORMATION
  Report Type: 
  Country: None (occurrence: None)
  Receive Date: 20061003
  Receipt Date: 20060905
  Transmission Date: 20070319
  Serious: Yes (Other)
  Sender: FDA-Public Use
  Company Number: US-JNJFOC-20060901196

PATIENT
  Age: 77 Year
  Sex: Female

DRUGS (1)
  1. ULTRAM SR [Suspect]
     Indication: SPINAL COLUMN STENOSIS
     Dosage: IN 1 DAY, ORAL
     Route: 048
     Dates: start: 20060811, end: 20060814

REACTIONS (3)
  - DIZZINESS [None]
  - FALL [None]
  - NIGHTMARE [None]
